FAERS Safety Report 7956285-8 (Version None)
Quarter: 2011Q4

REPORT INFORMATION
  Report Type: 
  Country: None (occurrence: None)
  Receive Date: 20111205
  Receipt Date: 20111127
  Transmission Date: 20120403
  Serious: Yes (Hospitalization, Other)
  Sender: FDA-Public Use
  Company Number: DE-JNJFOC-20111102923

PATIENT
  Sex: Female
  Weight: 80 kg

DRUGS (4)
  1. DOXEPIN [Suspect]
     Indication: PRODUCT USED FOR UNKNOWN INDICATION
     Route: 048
     Dates: start: 20111107, end: 20111107
  2. RISPERDAL [Suspect]
     Route: 048
  3. DOXEPIN [Suspect]
     Route: 048
  4. RISPERDAL [Suspect]
     Indication: PRODUCT USED FOR UNKNOWN INDICATION
     Route: 048
     Dates: start: 20111107, end: 20111107

REACTIONS (3)
  - INCORRECT DOSE ADMINISTERED [None]
  - SINUS TACHYCARDIA [None]
  - ELECTROCARDIOGRAM QT PROLONGED [None]
